FAERS Safety Report 23096825 (Version 1)
Quarter: 2023Q4

REPORT INFORMATION
  Report Type: Spontaneous
  Country: CN (occurrence: CN)
  Receive Date: 20231023
  Receipt Date: 20231023
  Transmission Date: 20240109
  Serious: Yes (Hospitalization)
  Sender: FDA-Public Use
  Company Number: CN-PFIZER INC-PV202300168919

PATIENT
  Age: 58 Year
  Sex: Male

DRUGS (3)
  1. PACLITAXEL [Suspect]
     Active Substance: PACLITAXEL
  2. NEDAPLATIN [Suspect]
     Active Substance: NEDAPLATIN
  3. SINTILIMAB [Suspect]
     Active Substance: SINTILIMAB
     Dosage: 200 MG, ONCE EVERY 3 WEEKS, 10 CYCLES IN TOTAL
     Dates: end: 20210318

REACTIONS (1)
  - Toxic epidermal necrolysis [Recovering/Resolving]

NARRATIVE: CASE EVENT DATE: 20210413
